FAERS Safety Report 12927617 (Version 1)
Quarter: 2016Q4

REPORT INFORMATION
  Report Type: Spontaneous
  Country: US (occurrence: US)
  Receive Date: 20161109
  Receipt Date: 20161109
  Transmission Date: 20170207
  Serious: No
  Sender: FDA-Public Use
  Company Number: US-009507513-1610USA010449

PATIENT
  Sex: Female

DRUGS (6)
  1. WARFARIN [Concomitant]
     Active Substance: WARFARIN
     Dosage: 5 MG, UNK
     Route: 048
  2. ZEPATIER [Suspect]
     Active Substance: ELBASVIR\GRAZOPREVIR
     Indication: HEPATITIS C
     Dosage: TAKE 1 TABLET EVERY DAY
     Route: 048
     Dates: start: 20160930
  3. BACTRIM [Concomitant]
     Active Substance: SULFAMETHOXAZOLE\TRIMETHOPRIM
     Dosage: 800-160 MG
     Route: 048
  4. LISINOPRIL. [Concomitant]
     Active Substance: LISINOPRIL
     Dosage: 5 MG, UNK
     Route: 048
  5. ATORVASTATIN [Concomitant]
     Active Substance: ATORVASTATIN
     Route: 048
  6. PEPCID RPD [Concomitant]
     Active Substance: FAMOTIDINE
     Dosage: 20 MG, UNK
     Route: 048

REACTIONS (2)
  - Nausea [Recovered/Resolved]
  - Diarrhoea [Recovered/Resolved]

NARRATIVE: CASE EVENT DATE: 2016
